FAERS Safety Report 7682943-9 (Version None)
Quarter: 2011Q3

REPORT INFORMATION
  Report Type: 
  Country: None (occurrence: None)
  Receive Date: 20110815
  Receipt Date: 20110808
  Transmission Date: 20111222
  Serious: Yes (Death, Other)
  Sender: FDA-Public Use
  Company Number: ES-ROCHE-795989

PATIENT

DRUGS (3)
  1. PEGINTERFERON ALFA-2B [Suspect]
     Route: 065
  2. PEGINTERFERON ALFA-2A [Suspect]
     Route: 065
  3. RIBAVIRIN [Suspect]
     Route: 065

REACTIONS (8)
  - ANAEMIA [None]
  - ASTHENIA [None]
  - OESOPHAGEAL VARICES HAEMORRHAGE [None]
  - SUDDEN DEATH [None]
  - OEDEMA [None]
  - THROMBOCYTOPENIA [None]
  - DRUG ABUSE [None]
  - DEPRESSION [None]
